FAERS Safety Report 8371992-3 (Version None)
Quarter: 2012Q2

REPORT INFORMATION
  Report Type: 
  Country: None (occurrence: None)
  Receive Date: 20120518
  Receipt Date: 20120209
  Transmission Date: 20120825
  Serious: Yes (Hospitalization)
  Sender: FDA-Public Use
  Company Number: US-ROCHE-417950

PATIENT
  Sex: Female
  Weight: 78.6 kg

DRUGS (6)
  1. TARCEVA [Suspect]
     Route: 048
  2. HERCEPTIN [Suspect]
     Route: 065
  3. PACLITAXEL [Suspect]
     Indication: BREAST CANCER
     Route: 042
  4. PACLITAXEL [Suspect]
     Route: 042
  5. TARCEVA [Suspect]
     Indication: BREAST CANCER
     Route: 048
  6. HERCEPTIN [Suspect]
     Indication: BREAST CANCER
     Route: 065

REACTIONS (6)
  - HYPOXIA [None]
  - DYSPNOEA [None]
  - HYPONATRAEMIA [None]
  - INFECTION [None]
  - HYPOKALAEMIA [None]
  - NON-CARDIAC CHEST PAIN [None]
